FAERS Safety Report 6879658-3 (Version None)
Quarter: 2010Q3

REPORT INFORMATION
  Report Type: 
  Country: None (occurrence: None)
  Receive Date: 20100728
  Receipt Date: 20100517
  Transmission Date: 20110219
  Serious: No
  Sender: FDA-Public Use
  Company Number: US-MYLANLABS-2010S1008863

PATIENT
  Age: 39 Year
  Sex: Male
  Weight: 115.67 kg

DRUGS (5)
  1. CLONIDINE HYDROCHLORIDE [Suspect]
     Indication: BLOOD PRESSURE INCREASED
     Route: 048
     Dates: start: 20091017
  2. PREDNISONE [Suspect]
     Indication: RENAL TRANSPLANT
     Route: 048
     Dates: start: 20090717
  3. CARVEDILOL [Concomitant]
     Indication: BLOOD PRESSURE INCREASED
     Route: 048
     Dates: start: 20080101
  4. IMMUNOSUPPRESSANTS [Concomitant]
     Indication: RENAL TRANSPLANT
     Dates: start: 20090101
  5. LASIX [Concomitant]
     Indication: BLOOD PRESSURE INCREASED
     Route: 048
     Dates: start: 20080101

REACTIONS (5)
  - DRY MOUTH [None]
  - FATIGUE [None]
  - MYALGIA [None]
  - OEDEMA PERIPHERAL [None]
  - WEIGHT INCREASED [None]
